FAERS Safety Report 8086971-3 (Version None)
Quarter: 2012Q1

REPORT INFORMATION
  Report Type: 
  Country: None (occurrence: None)
  Receive Date: 20120128
  Receipt Date: 20110520
  Transmission Date: 20120608
  Serious: No
  Sender: FDA-Public Use
  Company Number: US-ABBOTT-11P-163-0727421-00

PATIENT
  Age: 51 Year
  Sex: Female

DRUGS (6)
  1. SYNTHROID [Concomitant]
     Indication: PRODUCT USED FOR UNKNOWN INDICATION
     Dosage: 50 MCG DAILY
  2. ALPRAZOLAM [Concomitant]
     Indication: PRODUCT USED FOR UNKNOWN INDICATION
     Dosage: 0.5 MG DAILY
  3. FLUOXETINE [Concomitant]
     Indication: PRODUCT USED FOR UNKNOWN INDICATION
     Dosage: 20 MG DAILY
  4. METOPROLOL TARTRATE [Concomitant]
     Indication: PRODUCT USED FOR UNKNOWN INDICATION
     Dosage: 25 MG DAILY
  5. HUMIRA [Suspect]
     Indication: RHEUMATOID ARTHRITIS
     Dates: start: 20110424
  6. METHOTREXATE [Concomitant]
     Indication: PRODUCT USED FOR UNKNOWN INDICATION
     Dosage: 5 TABLETS WEEKLY

REACTIONS (3)
  - DRUG ADMINISTERED AT INAPPROPRIATE SITE [None]
  - WRONG TECHNIQUE IN DRUG USAGE PROCESS [None]
  - INJECTION SITE PAIN [None]
